FAERS Safety Report 9436253 (Version 1)
Quarter: 2013Q3

REPORT INFORMATION
  Report Type: Spontaneous
  Country: DE (occurrence: DE)
  Receive Date: 20130802
  Receipt Date: 20130802
  Transmission Date: 20140515
  Serious: Yes (Hospitalization, Other)
  Sender: FDA-Public Use
  Company Number: DE-AMGEN-DEUSP2013053676

PATIENT
  Age: 50 Year
  Sex: Male

DRUGS (3)
  1. ENBREL [Suspect]
     Indication: RHEUMATOID ARTHRITIS
     Dosage: 25 UNK, 2X/WEEK
     Route: 065
     Dates: start: 201211, end: 201307
  2. MTX                                /00113802/ [Concomitant]
     Indication: RHEUMATOID ARTHRITIS
     Dosage: 15 UNK, WEEKLY
  3. CORTISONE [Concomitant]
     Indication: RHEUMATOID ARTHRITIS
     Dosage: 5 MG, UNK
     Route: 048

REACTIONS (1)
  - Rash maculo-papular [Recovering/Resolving]
